FAERS Safety Report 11270137 (Version 2)
Quarter: 2015Q3

REPORT INFORMATION
  Report Type: Spontaneous
  Country: US (occurrence: US)
  Receive Date: 20150714
  Receipt Date: 20150730
  Transmission Date: 20151125
  Serious: Yes (Death, Hospitalization)
  Sender: FDA-Public Use
  Company Number: US-PFIZER INC-2015229506

PATIENT
  Age: 72 Year
  Sex: Male

DRUGS (15)
  1. FUROSEMIDE. [Concomitant]
     Active Substance: FUROSEMIDE
     Dosage: 40 MG, DAILY
  2. DILTIAZEM [Concomitant]
     Active Substance: DILTIAZEM
     Dosage: 240 MG, DAILY
  3. TIOTROPIUM [Concomitant]
     Active Substance: TIOTROPIUM
     Dosage: 18 ?G, UNK (18MCG 1X1)
  4. ALBUTEROL SULFATE. [Concomitant]
     Active Substance: ALBUTEROL SULFATE
     Indication: DYSPNOEA
     Dosage: 90 ?G, AS NEEDED
  5. MUCINEX [Concomitant]
     Active Substance: GUAIFENESIN
     Dosage: 600 MG, UNK (600MG X 2)
  6. ALBUTEROL. [Concomitant]
     Active Substance: ALBUTEROL
     Dosage: 2.5 MG, UNK
  7. METOPROLOL TARTRATE. [Concomitant]
     Active Substance: METOPROLOL TARTRATE
     Dosage: 25 MG, UNK (25MG X 1)
  8. BUDESONIDE/FORMOTEROL FUMARATE [Concomitant]
     Dosage: 2 DF, 2X/DAY
  9. ALPRAZOLAM. [Concomitant]
     Active Substance: ALPRAZOLAM
     Dosage: 0.25 MG, UNK (0.25MG X 1)
  10. VFEND [Concomitant]
     Active Substance: VORICONAZOLE
     Indication: ASPERGILLUS INFECTION
     Dosage: 200 MG, 1X/DAY
  11. ASPIRIN. [Concomitant]
     Active Substance: ASPIRIN
     Dosage: 325 MG, UNK (325MG X 1)
  12. VFEND [Suspect]
     Active Substance: VORICONAZOLE
     Indication: ASPERGILLUS INFECTION
     Dosage: UNK
  13. PREDNISONE. [Concomitant]
     Active Substance: PREDNISONE
     Dosage: UNK (10MG 2X3 THEN 1X1 FOR 3 DAYS)
  14. ATORVASTATIN [Concomitant]
     Active Substance: ATORVASTATIN
     Dosage: 10 MG, UNK (10MG X 1)
  15. OMEPRAZOLE. [Concomitant]
     Active Substance: OMEPRAZOLE
     Dosage: 20 MG, UNK (20MG X 1)

REACTIONS (1)
  - Death [Fatal]

NARRATIVE: CASE EVENT DATE: 20150630
